FAERS Safety Report 13446501 (Version 4)
Quarter: 2017Q3

REPORT INFORMATION
  Report Type: Spontaneous
  Country: JP (occurrence: JP)
  Receive Date: 20170417
  Receipt Date: 20170721
  Transmission Date: 20171127
  Serious: Yes (Hospitalization, Other)
  Sender: FDA-Public Use
  Company Number: JP-ROCHE-1920918

PATIENT
  Age: 60 Year
  Sex: Male

DRUGS (12)
  1. LYRICA [Concomitant]
     Active Substance: PREGABALIN
     Indication: SCIATICA
     Route: 048
     Dates: start: 20170222
  2. NEORAL [Suspect]
     Active Substance: CYCLOSPORINE
     Route: 048
     Dates: start: 20170417
  3. BROTIZOLAM [Concomitant]
     Active Substance: BROTIZOLAM
     Indication: INSOMNIA
     Route: 048
     Dates: start: 20170310
  4. XOLAIR [Suspect]
     Active Substance: OMALIZUMAB
     Indication: URTICARIA CHRONIC
     Route: 058
     Dates: start: 20170329
  5. NEORAL [Suspect]
     Active Substance: CYCLOSPORINE
     Indication: URTICARIA CHRONIC
     Dosage: 3 MG/KG
     Route: 048
     Dates: start: 20170324, end: 20170405
  6. NEORAL [Suspect]
     Active Substance: CYCLOSPORINE
     Route: 048
     Dates: start: 20170413, end: 20170416
  7. AMLODIPINE [Concomitant]
     Active Substance: AMLODIPINE BESYLATE
     Indication: HYPERTENSION
     Route: 048
  8. NEORAL [Suspect]
     Active Substance: CYCLOSPORINE
     Dosage: 2 MG/KG
     Route: 048
     Dates: start: 20170406, end: 20170412
  9. BILASTINE [Concomitant]
     Active Substance: BILASTINE
     Indication: URTICARIA CHRONIC
     Route: 065
  10. PLAVIX [Concomitant]
     Active Substance: CLOPIDOGREL BISULFATE
     Indication: MYOCARDIAL INFARCTION
     Route: 048
  11. TALION (JAPAN) [Concomitant]
     Active Substance: BEPOTASTINE
     Indication: URTICARIA CHRONIC
     Route: 065
     Dates: start: 20161012
  12. OLOPATADINE. [Concomitant]
     Active Substance: OLOPATADINE
     Indication: URTICARIA CHRONIC
     Route: 048
     Dates: start: 20161109

REACTIONS (6)
  - Hypoaesthesia oral [Recovered/Resolved]
  - Gingival bleeding [Recovered/Resolved]
  - Malaise [Recovering/Resolving]
  - Pruritus [Unknown]
  - Therapeutic response unexpected [Unknown]
  - Dry skin [Recovering/Resolving]

NARRATIVE: CASE EVENT DATE: 20170329
